FAERS Safety Report 8336360-9 (Version None)
Quarter: 2012Q2

REPORT INFORMATION
  Report Type: 
  Country: None (occurrence: None)
  Receive Date: 20120504
  Receipt Date: 20120425
  Transmission Date: 20120825
  Serious: Yes (Other)
  Sender: FDA-Public Use
  Company Number: PHHY2011FR101386

PATIENT
  Sex: Female

DRUGS (8)
  1. EXELON [Suspect]
     Indication: DEMENTIA ALZHEIMER'S TYPE
     Dosage: 4.6 MG, PER 24 HOURS
     Route: 062
     Dates: start: 20110801, end: 20111101
  2. EQUANIL [Concomitant]
  3. APROVEL [Suspect]
     Dates: end: 20120101
  4. TOPALGIC ^HOUDE^ [Concomitant]
  5. EXELON [Suspect]
     Dosage: 4.6 MG, PER 24 HOURS
     Route: 062
  6. CARBAMAZEPINE [Concomitant]
  7. LORAZEPAM [Concomitant]
  8. ATHYMIL [Concomitant]

REACTIONS (2)
  - FALL [None]
  - SYNCOPE [None]
